FAERS Safety Report 7717419-3 (Version None)
Quarter: 2011Q3

REPORT INFORMATION
  Report Type: 
  Country: None (occurrence: None)
  Receive Date: 20110823
  Receipt Date: 20110630
  Transmission Date: 20111222
  Serious: Yes (Hospitalization)
  Sender: FDA-Public Use
  Company Number: 20110622CINRY2075

PATIENT
  Age: 41 Year
  Sex: Female

DRUGS (23)
  1. PREVACID [Concomitant]
  2. TOPAMAX [Concomitant]
  3. CINRYZE [Suspect]
     Indication: PROPHYLAXIS
     Dosage: (2 IN 1 WK), INTRAVENOUS
     Route: 042
  4. CINRYZE [Suspect]
     Indication: HEREDITARY ANGIOEDEMA
     Dosage: (2 IN 1 WK), INTRAVENOUS
     Route: 042
  5. WELLBUTRIN [Concomitant]
  6. RELPAX [Concomitant]
  7. MAXAIR [Concomitant]
  8. ACETAMINOPHEN [Concomitant]
  9. PROTONIX [Concomitant]
  10. ASTEPRO [Concomitant]
  11. PHENERGAN [Concomitant]
  12. ZYRTEC [Concomitant]
  13. FLOVENT [Concomitant]
  14. VICODIN [Concomitant]
  15. KALBITOR [Suspect]
     Indication: HEREDITARY ANGIOEDEMA
     Dosage: 30 MG (30 MG, 1 IN 1 D), 30 MG (30 MG, 1 IN 1 D)
     Dates: start: 20110607, end: 20110607
  16. KALBITOR [Suspect]
     Indication: HEREDITARY ANGIOEDEMA
     Dosage: 30 MG (30 MG, 1 IN 1 D), 30 MG (30 MG, 1 IN 1 D)
     Dates: start: 20110606, end: 20110606
  17. SINGULAIR [Concomitant]
  18. LIDODERM [Concomitant]
  19. MAXALT (RIZATRIPTAN) [Concomitant]
  20. ATARAX [Concomitant]
  21. NASONEX [Concomitant]
  22. RANITIDINE [Concomitant]
  23. SENOKOT (SENNA ALEXANDRINA) [Concomitant]

REACTIONS (4)
  - OFF LABEL USE [None]
  - HEREDITARY ANGIOEDEMA [None]
  - INCORRECT DRUG ADMINISTRATION RATE [None]
  - UNEVALUABLE EVENT [None]
